FAERS Safety Report 7274603 (Version 13)
Quarter: 2016Q3

REPORT INFORMATION
  Report Type: Report from Study
  Country: JP (occurrence: JP)
  Receive Date: 20100209
  Receipt Date: 20160708
  Transmission Date: 20161109
  Serious: Yes (Hospitalization, Other)
  Sender: FDA-Public Use
  Company Number: JP-ROCHE-GNE297760

PATIENT
  Age: 49 Year
  Sex: Female
  Weight: 55.96 kg

DRUGS (31)
  1. OMALIZUMAB [Suspect]
     Active Substance: OMALIZUMAB
     Dosage: 150 MG, Q3W
     Route: 058
     Dates: start: 20100108
  2. ADVAIR HFA [Concomitant]
     Active Substance: FLUTICASONE PROPIONATE\SALMETEROL XINAFOATE
     Indication: ASTHMA
     Dosage: 500 UG, BID
     Route: 055
     Dates: start: 20090204
  3. HIRUDOID (MUCOPOLYSACCHARIDE POLYSULFURIC ACID ESTER) [Concomitant]
     Indication: PRODUCT USED FOR UNKNOWN INDICATION
     Dosage: 25 MG, UNK
     Route: 062
     Dates: start: 20090807
  4. LIMAS [Concomitant]
     Active Substance: LITHIUM CARBONATE
     Indication: PRODUCT USED FOR UNKNOWN INDICATION
     Dosage: 800 MG, UNK
     Route: 048
     Dates: start: 20090807
  5. OMALIZUMAB [Suspect]
     Active Substance: OMALIZUMAB
     Indication: ASTHMA
     Dosage: 150 MG, 1/MONTH
     Route: 058
     Dates: start: 20090807, end: 20090908
  6. OMALIZUMAB [Suspect]
     Active Substance: OMALIZUMAB
     Dosage: 150 MG, Q3W
     Route: 058
     Dates: start: 20100426
  7. RINDERON V [Suspect]
     Active Substance: BETAMETHASONE VALERATE
     Dosage: 4 MG, QD
     Route: 041
     Dates: start: 20090824, end: 20090907
  8. SULTANOL [Concomitant]
     Active Substance: ALBUTEROL SULFATE
     Dosage: 1 DF, 2-16 TIMES
     Route: 055
     Dates: start: 20090824, end: 20090907
  9. SULTANOL [Concomitant]
     Active Substance: ALBUTEROL SULFATE
     Dosage: 1 DF, 10-12 TIMES
     Route: 055
     Dates: start: 20091001, end: 20091114
  10. ZITHROMAC [Concomitant]
     Active Substance: AZITHROMYCIN DIHYDRATE
     Indication: PRODUCT USED FOR UNKNOWN INDICATION
     Dosage: 2 G, UNK
     Route: 048
     Dates: start: 19901217, end: 20091210
  11. LECTISOL [Concomitant]
     Active Substance: DAPSONE
     Indication: PRODUCT USED FOR UNKNOWN INDICATION
     Dosage: 25 MG, TID
     Route: 048
  12. CEFTRIAXONE SODIUM. [Concomitant]
     Active Substance: CEFTRIAXONE SODIUM
     Indication: PRODUCT USED FOR UNKNOWN INDICATION
     Dosage: 2 G
     Route: 065
     Dates: start: 20091210, end: 20091214
  13. ZYRTEC [Concomitant]
     Active Substance: CETIRIZINE HYDROCHLORIDE
     Indication: PRODUCT USED FOR UNKNOWN INDICATION
     Dosage: 10 MG, QD
     Route: 048
     Dates: start: 20090807
  14. ALVESCO [Concomitant]
     Active Substance: CICLESONIDE
     Indication: ASTHMA
     Dosage: 400 UG, BID
     Route: 055
     Dates: start: 20090204
  15. ALLELOCK [Concomitant]
     Active Substance: OLOPATADINE HYDROCHLORIDE
     Indication: ASTHMA
     Dosage: 5 MG, BID
     Route: 048
     Dates: start: 20090204
  16. ALLELOCK [Concomitant]
     Active Substance: OLOPATADINE HYDROCHLORIDE
     Dosage: 10 MG, BID
     Route: 048
  17. SULTANOL [Concomitant]
     Active Substance: ALBUTEROL SULFATE
     Indication: ASTHMA
     Dosage: 2 DF, PRN
     Route: 055
     Dates: start: 20090204
  18. OMALIZUMAB [Suspect]
     Active Substance: OMALIZUMAB
     Dosage: 150 MG, UNK
     Route: 058
     Dates: start: 20100318
  19. RINDERON V [Suspect]
     Active Substance: BETAMETHASONE VALERATE
     Indication: ASTHMA
     Dosage: 1 MG, BID
     Route: 048
     Dates: start: 20090204
  20. HERBESSER [Concomitant]
     Active Substance: DILTIAZEM HYDROCHLORIDE
     Indication: PRODUCT USED FOR UNKNOWN INDICATION
     Dosage: 200 MG, UNK
     Route: 048
     Dates: start: 20090807
  21. CINAL [Concomitant]
     Active Substance: ASCORBIC ACID\CALCIUM PANTOTHENATE
     Indication: PRODUCT USED FOR UNKNOWN INDICATION
     Dosage: 400 MG, BID
     Route: 048
     Dates: start: 20090807
  22. OMALIZUMAB [Suspect]
     Active Substance: OMALIZUMAB
     Dosage: 150 MG, 1/MONTH
     Route: 058
     Dates: start: 20090908, end: 20090908
  23. RINDERON V [Suspect]
     Active Substance: BETAMETHASONE VALERATE
     Dosage: 1 MG, 2 TO 4 TIMES
     Route: 048
     Dates: start: 20090815
  24. RINDERON V [Suspect]
     Active Substance: BETAMETHASONE VALERATE
     Dosage: 4 MG, 1 TO 3 TIMES
     Route: 041
     Dates: start: 20091001, end: 20091114
  25. TEXMETEN [Concomitant]
     Indication: PRODUCT USED FOR UNKNOWN INDICATION
     Dosage: 25 MG, UNK
     Route: 062
     Dates: start: 20090807
  26. OMALIZUMAB [Suspect]
     Active Substance: OMALIZUMAB
     Dosage: 150 MG, UNK
     Route: 058
     Dates: start: 20100118
  27. OMALIZUMAB [Suspect]
     Active Substance: OMALIZUMAB
     Dosage: 150 MG, UNK
     Route: 058
     Dates: start: 20100225
  28. SINGULAIR [Concomitant]
     Active Substance: MONTELUKAST SODIUM
     Indication: ASTHMA
     Dosage: 10 MG, QD
     Route: 048
     Dates: start: 20090513
  29. IPD [Concomitant]
     Active Substance: SUPLATAST TOSILATE
     Indication: ASTHMA
     Dosage: 100 MG, TID
     Route: 048
     Dates: start: 20090914
  30. SULTANOL [Concomitant]
     Active Substance: ALBUTEROL SULFATE
     Dosage: 1 DF, 2-9 TIMES
     Route: 055
     Dates: start: 20090815, end: 20090818
  31. CRAVIT [Concomitant]
     Active Substance: LEVOFLOXACIN
     Indication: PRODUCT USED FOR UNKNOWN INDICATION
     Dosage: 400 MG, UNK
     Route: 048
     Dates: start: 20091215, end: 20091219

REACTIONS (10)
  - Altered state of consciousness [Unknown]
  - Pruritus [Unknown]
  - Drug eruption [Not Recovered/Not Resolved]
  - Malaise [Recovered/Resolved]
  - Scleritis [Recovering/Resolving]
  - Pneumonia [Unknown]
  - Nasopharyngitis [Recovered/Resolved]
  - Weight increased [Not Recovered/Not Resolved]
  - Asthma [Unknown]
  - Chronic respiratory failure [Unknown]

NARRATIVE: CASE EVENT DATE: 20090807
